FAERS Safety Report 16848489 (Version 1)
Quarter: 2019Q3

REPORT INFORMATION
  Report Type: Spontaneous
  Country: SI (occurrence: SI)
  Receive Date: 20190925
  Receipt Date: 20190925
  Transmission Date: 20191005
  Serious: Yes (Death, Life-Threatening, Hospitalization, Other)
  Sender: FDA-Public Use
  Company Number: SI-MACLEODS PHARMACEUTICALS US LTD-MAC2019020791

PATIENT

DRUGS (4)
  1. EFECTIN [Suspect]
     Active Substance: VENLAFAXINE HYDROCHLORIDE
     Indication: DEPRESSION
     Dosage: UNK, OVERDOSE, LARGE DOSE
     Route: 065
  2. EFECTIN [Suspect]
     Active Substance: VENLAFAXINE HYDROCHLORIDE
     Indication: SUICIDE ATTEMPT
     Dosage: UNK, NORMAL DOSE (SHE WAS BEING TREATED FOR DEPRESSION)
     Route: 065
  3. DULOXETINE. [Suspect]
     Active Substance: DULOXETINE
     Indication: SUICIDE ATTEMPT
     Dosage: UNK, NORMAL DOSE (SHE WAS BEING TREATED FOR DEPRESSION)
     Route: 065
  4. DULOXETINE. [Suspect]
     Active Substance: DULOXETINE
     Indication: DEPRESSION
     Dosage: UNK, OVERDOSE, LARGE DOSE
     Route: 065

REACTIONS (15)
  - Intentional overdose [Fatal]
  - Coma [Unknown]
  - Electrocardiogram QRS complex abnormal [Unknown]
  - Generalised tonic-clonic seizure [Recovered/Resolved]
  - Arrhythmia [Not Recovered/Not Resolved]
  - Respiratory alkalosis [Unknown]
  - Serotonin syndrome [Fatal]
  - Hypotension [Not Recovered/Not Resolved]
  - Toxicity to various agents [Fatal]
  - Bradycardia [Unknown]
  - Cardiac failure [Not Recovered/Not Resolved]
  - Metabolic acidosis [Unknown]
  - Sinus tachycardia [Unknown]
  - Tachypnoea [Unknown]
  - Vomiting [Unknown]
